FAERS Safety Report 6058672-4 (Version None)
Quarter: 2009Q1

REPORT INFORMATION
  Report Type: 
  Country: None (occurrence: None)
  Receive Date: 20090130
  Receipt Date: 20090116
  Transmission Date: 20090719
  Serious: No
  Sender: FDA-Public Use
  Company Number: US-ASTRAZENECA-2009UW01432

PATIENT
  Sex: Male

DRUGS (2)
  1. TOPROL-XL [Suspect]
     Dosage: UNKNOWN
     Route: 048
     Dates: start: 20070801
  2. NEXIUM [Suspect]
     Dosage: UNKNOWN
     Route: 048

REACTIONS (1)
  - TACHYCARDIA [None]
